FAERS Safety Report 15894354 (Version 1)
Quarter: 2019Q1

REPORT INFORMATION
  Report Type: Spontaneous
  Country: CZ (occurrence: CZ)
  Receive Date: 20190131
  Receipt Date: 20190131
  Transmission Date: 20190417
  Serious: Yes (Life-Threatening, Hospitalization)
  Sender: FDA-Public Use
  Company Number: CZ-SAKK-2019SA022664AA

PATIENT
  Age: 61 Year
  Sex: Male
  Weight: 68 kg

DRUGS (1)
  1. ZALTRAP [Suspect]
     Active Substance: ZIV-AFLIBERCEPT
     Indication: RECTAL CANCER
     Dosage: 272 MG
     Route: 042
     Dates: start: 20181218, end: 20190108

REACTIONS (3)
  - Tachycardia [Recovering/Resolving]
  - Palpitations [Recovering/Resolving]
  - Hypotension [Recovering/Resolving]

NARRATIVE: CASE EVENT DATE: 20190108
